FAERS Safety Report 4944389-3 (Version None)
Quarter: 2006Q1

REPORT INFORMATION
  Report Type: 
  Country: None (occurrence: None)
  Receive Date: 20060104
  Receipt Date: 20050811
  Transmission Date: 20060701
  Serious: Yes (Other)
  Sender: FDA-Public Use
  Company Number: A03200502475

PATIENT
  Age: 64 Year
  Sex: Male
  Weight: 69.4003 kg

DRUGS (8)
  1. ELOXATIN [Suspect]
     Indication: COLON CANCER METASTATIC
     Dosage: 153 MG Q4W-INTRAVENOUS NOS
     Route: 042
     Dates: start: 20050805, end: 20050805
  2. FLUOROURACIL [Concomitant]
  3. LEUCOVORIN CALCIUM [Concomitant]
  4. BEVACIZUMAB [Concomitant]
  5. DOLASETRON  MESILATE [Concomitant]
  6. DEXAMETHASONE TAB [Concomitant]
  7. CALCIUM GLUCONATE [Concomitant]
  8. MAGNESIUM CHLORIDE ANHYDROUS [Concomitant]

REACTIONS (2)
  - PALMAR ERYTHEMA [None]
  - PRURITUS [None]
